FAERS Safety Report 18001888 (Version 1)
Quarter: 2020Q3

REPORT INFORMATION
  Report Type: Report from Study
  Country: CA (occurrence: CA)
  Receive Date: 20200709
  Receipt Date: 20200709
  Transmission Date: 20201103
  Serious: Yes (Other)
  Sender: FDA-Public Use
  Company Number: CA-ACCORD-189586

PATIENT
  Age: 37 Year
  Sex: Male

DRUGS (8)
  1. OTEZLA [Concomitant]
     Active Substance: APREMILAST
  2. REMICADE [Concomitant]
     Active Substance: INFLIXIMAB
  3. BETAMETHASONE. [Concomitant]
     Active Substance: BETAMETHASONE
  4. COSENTYX [Suspect]
     Active Substance: SECUKINUMAB
     Indication: PSORIASIS
     Dosage: 1 EVERY 1 WEEKS
     Route: 058
  5. HUMIRA [Concomitant]
     Active Substance: ADALIMUMAB
  6. ENBREL [Concomitant]
     Active Substance: ETANERCEPT
  7. METHOTREXATE. [Suspect]
     Active Substance: METHOTREXATE
     Indication: PRODUCT USED FOR UNKNOWN INDICATION
  8. CALCIPOTRIOL AND BETAMETHASONE [Concomitant]
     Active Substance: BETAMETHASONE\CALCIPOTRIENE

REACTIONS (4)
  - Incorrect dose administered [Unknown]
  - Drug ineffective [Unknown]
  - Device malfunction [Unknown]
  - Psoriatic arthropathy [Not Recovered/Not Resolved]
